FAERS Safety Report 6622130 (Version 36)
Quarter: 2014Q3

REPORT INFORMATION
  Report Type: Spontaneous
  Country: US (occurrence: US)
  Receive Date: 20080423
  Receipt Date: 20140721
  Transmission Date: 20150326
  Serious: Yes (Other)
  Sender: FDA-Public Use
  Company Number: PHEH2008US03883

PATIENT
  Age: 72 Year
  Sex: Female

DRUGS (32)
  1. ASA [Concomitant]
     Active Substance: ASPIRIN
     Dosage: 81 MG, UNK
  2. CELEBREX [Concomitant]
     Active Substance: CELECOXIB
  3. VALIUM [Concomitant]
     Active Substance: DIAZEPAM
  4. AUGMENTIN [Concomitant]
     Active Substance: AMOXICILLIN\CLAVULANATE POTASSIUM
  5. MIDAZOLAM [Concomitant]
     Active Substance: MIDAZOLAM\MIDAZOLAM HYDROCHLORIDE
  6. NEXIUM [Concomitant]
     Active Substance: ESOMEPRAZOLE MAGNESIUM
     Dates: start: 20050205
  7. NEURONTIN [Concomitant]
     Active Substance: GABAPENTIN
     Dosage: 100 MG, TID
  8. DARVOCET-N 100 [Concomitant]
     Active Substance: ACETAMINOPHEN\PROPOXYPHENE NAPSYLATE
  9. ARTHROTEC [Concomitant]
     Active Substance: DICLOFENAC SODIUM\MISOPROSTOL
  10. AMBIEN [Concomitant]
     Active Substance: ZOLPIDEM TARTRATE
  11. LOMOTIL [Concomitant]
     Active Substance: ATROPINE SULFATE\DIPHENOXYLATE HYDROCHLORIDE
  12. AREDIA [Suspect]
     Active Substance: PAMIDRONATE DISODIUM
     Dosage: 60 MG
     Route: 041
  13. ZOCOR ^DIECKMANN^ [Concomitant]
  14. ZOMETA [Suspect]
     Active Substance: ZOLEDRONIC ACID
     Dosage: UNK UKN, UNK
     Dates: start: 20030630
  15. CALTRATE WITH VITAMIN D [Concomitant]
     Active Substance: CALCIUM CARBONATE\VITAMIN D
  16. PRILOSEC [Concomitant]
     Active Substance: OMEPRAZOLE MAGNESIUM
     Dates: end: 20050205
  17. ZANTAC [Concomitant]
     Active Substance: RANITIDINE HYDROCHLORIDE
     Dates: end: 20050205
  18. TAZORAC [Concomitant]
     Active Substance: TAZAROTENE
  19. FENTANYL. [Concomitant]
     Active Substance: FENTANYL
  20. PROPOFOL. [Concomitant]
     Active Substance: PROPOFOL
  21. FOSAMAX [Concomitant]
     Active Substance: ALENDRONATE SODIUM
  22. MIACALCIN [Concomitant]
     Active Substance: CALCITONIN SALMON
  23. LYRICA [Concomitant]
     Active Substance: PREGABALIN
  24. TEGRETOL [Concomitant]
     Active Substance: CARBAMAZEPINE
  25. VIOXX [Concomitant]
     Active Substance: ROFECOXIB
  26. SYNTHROID [Concomitant]
     Active Substance: LEVOTHYROXINE SODIUM
  27. EVISTA [Concomitant]
     Active Substance: RALOXIFENE HYDROCHLORIDE
     Dosage: 60 MG, UNK
  28. ZOMETA [Suspect]
     Active Substance: ZOLEDRONIC ACID
     Dosage: 4 MG
     Route: 041
     Dates: start: 20030311
  29. ASA [Concomitant]
     Active Substance: ASPIRIN
     Dosage: 325 MG, UNK
  30. ZOLOFT [Concomitant]
     Active Substance: SERTRALINE HYDROCHLORIDE
  31. GLUCOSAMINE [Concomitant]
     Active Substance: GLUCOSAMINE
  32. PERCOCET [Concomitant]
     Active Substance: ACETAMINOPHEN\OXYCODONE HYDROCHLORIDE

REACTIONS (168)
  - Candida infection [Unknown]
  - Osteitis [Unknown]
  - Dysphagia [Unknown]
  - Lumbar spinal stenosis [Unknown]
  - Bronchiectasis [Unknown]
  - Gastritis [Unknown]
  - Lentigo [Unknown]
  - Nail candida [Unknown]
  - Atrial fibrillation [Unknown]
  - Macular fibrosis [Unknown]
  - Polymyalgia rheumatica [Unknown]
  - Inguinal hernia [Unknown]
  - Dysphonia [Unknown]
  - Radius fracture [Unknown]
  - Breast mass [Unknown]
  - Pathological fracture [Unknown]
  - Local swelling [Unknown]
  - Osteonecrosis of jaw [Unknown]
  - Skin disorder [Unknown]
  - Cyst [Unknown]
  - Injury [Unknown]
  - Physical disability [Unknown]
  - Hypothyroidism [Unknown]
  - Breast calcifications [Unknown]
  - Bladder spasm [Unknown]
  - Urinary tract infection [Unknown]
  - Ulcer [Unknown]
  - Lumbar radiculopathy [Unknown]
  - Rectal haemorrhage [Unknown]
  - Left ventricular hypertrophy [Unknown]
  - Paraesthesia [Unknown]
  - Skin lesion [Unknown]
  - Coronary artery disease [Unknown]
  - Oropharyngeal pain [Unknown]
  - Bowen^s disease [Unknown]
  - Glucose tolerance impaired [Unknown]
  - Depression [Unknown]
  - Myalgia [Unknown]
  - Obstructive airways disorder [Unknown]
  - Osteopenia [Unknown]
  - Scar [Unknown]
  - Emotional distress [Unknown]
  - Gastrooesophageal reflux disease [Unknown]
  - Hyperlipidaemia [Unknown]
  - Fibrocystic breast disease [Unknown]
  - Amnesia [Unknown]
  - Dysgeusia [Unknown]
  - Metaplasia [Unknown]
  - Carpal tunnel syndrome [Unknown]
  - Deafness [Unknown]
  - Cervical cyst [Unknown]
  - Macular oedema [Unknown]
  - Aortic valve incompetence [Unknown]
  - Kyphosis [Unknown]
  - Atelectasis [Unknown]
  - Syncope [Unknown]
  - Ovarian atrophy [Unknown]
  - Onycholysis [Unknown]
  - Sinus arrhythmia [Unknown]
  - Stress [Unknown]
  - Dermal cyst [Unknown]
  - Balance disorder [Unknown]
  - Visual acuity reduced [Unknown]
  - Seborrhoeic keratosis [Unknown]
  - Inflammation [Unknown]
  - Pain [Unknown]
  - Anxiety [Unknown]
  - Hiatus hernia [Unknown]
  - Tooth fracture [Unknown]
  - Suicidal ideation [Unknown]
  - Catheterisation cardiac [Unknown]
  - Neuropathy peripheral [Unknown]
  - Sciatica [Unknown]
  - Oesophageal disorder [Unknown]
  - Colon adenoma [Unknown]
  - Ecchymosis [Unknown]
  - Bronchial wall thickening [Unknown]
  - Chronic obstructive pulmonary disease [Unknown]
  - Scoliosis [Unknown]
  - Musculoskeletal discomfort [Unknown]
  - Mitral valve calcification [Unknown]
  - Oedema peripheral [Unknown]
  - Cerebral small vessel ischaemic disease [Unknown]
  - Arteriosclerosis coronary artery [Unknown]
  - Abdominal pain [Unknown]
  - Pulmonary mass [Unknown]
  - Purpura [Unknown]
  - Dysuria [Unknown]
  - Neck pain [Unknown]
  - Dyspnoea [Unknown]
  - Emphysema [Unknown]
  - Vertebral foraminal stenosis [Unknown]
  - Retinal vein occlusion [Unknown]
  - Vertigo positional [Unknown]
  - Hypertension [Unknown]
  - Arthralgia [Unknown]
  - Palpitations [Unknown]
  - Bone cyst [Unknown]
  - Rash [Unknown]
  - Aortic dilatation [Unknown]
  - Gingival ulceration [Unknown]
  - Bladder dilatation [Unknown]
  - Oesophageal spasm [Unknown]
  - Dementia Alzheimer^s type [Unknown]
  - Convulsion [Unknown]
  - Abdominal pain upper [Unknown]
  - Osteomyelitis [Unknown]
  - Wrist fracture [Unknown]
  - Mitral valve incompetence [Unknown]
  - Pleural effusion [Unknown]
  - Atrophic vulvovaginitis [Unknown]
  - Pulmonary embolism [Unknown]
  - Rhinitis [Unknown]
  - Laryngeal oedema [Unknown]
  - Pollakiuria [Unknown]
  - Ligament sprain [Unknown]
  - Carotid artery stenosis [Unknown]
  - Spinal deformity [Unknown]
  - Gingival erythema [Unknown]
  - Swelling [Unknown]
  - Asthenia [Unknown]
  - Chest X-ray abnormal [Unknown]
  - Squamous cell carcinoma of skin [Unknown]
  - Basal cell carcinoma [Unknown]
  - Actinic keratosis [Unknown]
  - Infection [Unknown]
  - Rosacea [Unknown]
  - Micturition urgency [Unknown]
  - Hypoaesthesia [Unknown]
  - Fall [Unknown]
  - Thyroid disorder [Unknown]
  - Intervertebral disc degeneration [Unknown]
  - Cerebral atrophy [Unknown]
  - Onychomycosis [Unknown]
  - Pulmonary hypertension [Unknown]
  - Spinal osteoarthritis [Unknown]
  - Diverticulum [Unknown]
  - Left atrial dilatation [Unknown]
  - Radiculitis [Unknown]
  - Tricuspid valve incompetence [Unknown]
  - Aortic calcification [Unknown]
  - Dermatitis [Unknown]
  - Urticaria [Unknown]
  - Osteosclerosis [Unknown]
  - Pain in extremity [Unknown]
  - Swelling face [Unknown]
  - Rheumatoid arthritis [Unknown]
  - Ataxia [Unknown]
  - Gastritis erosive [Unknown]
  - Spondylolisthesis [Unknown]
  - Lung hyperinflation [Unknown]
  - Arthritis [Unknown]
  - Raynaud^s phenomenon [Unknown]
  - Cataract [Unknown]
  - Dental caries [Unknown]
  - Femoral hernia [Unknown]
  - Hernia [Unknown]
  - Lipoma [Unknown]
  - Aortic disorder [Unknown]
  - Hyporeflexia [Unknown]
  - Dermatitis contact [Unknown]
  - Oedema [Unknown]
  - Thyroid neoplasm [Unknown]
  - Pneumonia [Unknown]
  - Tooth loss [Unknown]
  - Abdominal distension [Unknown]
  - Osteoarthritis [Unknown]
  - Vascular calcification [Unknown]

NARRATIVE: CASE EVENT DATE: 200308
